FAERS Safety Report 20788184 (Version 1)
Quarter: 2022Q2

REPORT INFORMATION
  Report Type: Spontaneous
  Country: US (occurrence: None)
  Receive Date: 20220505
  Receipt Date: 20220505
  Transmission Date: 20220721
  Serious: No
  Sender: FDA-Public Use
  Company Number: US-ROCHE-2962486

PATIENT
  Age: 61 Year
  Sex: Female
  Weight: 54.480 kg

DRUGS (2)
  1. OCREVUS [Suspect]
     Active Substance: OCRELIZUMAB
     Indication: Relapsing-remitting multiple sclerosis
     Dosage: PATIENT ONLY HAD 1ST INTRODUCTORY DOSE SPLIT IN HALF, GIVEN 2 WEEKS APART,?THEN INFUSE 600MG Q 6 MON
     Route: 042
     Dates: start: 2021
  2. PFIZER-BIONTECH COVID-19 VACCINE [Concomitant]
     Active Substance: TOZINAMERAN
     Dosage: NEXT DOSE: AUG/2021, 16/AUG/2021
     Dates: start: 202103

REACTIONS (1)
  - Vaccination failure [Unknown]

NARRATIVE: CASE EVENT DATE: 20211101
